FAERS Safety Report 11889693 (Version 5)
Quarter: 2016Q1

REPORT INFORMATION
  Report Type: Spontaneous
  Country: JP (occurrence: JP)
  Receive Date: 20160105
  Receipt Date: 20160314
  Transmission Date: 20160526
  Serious: Yes (Death, Hospitalization)
  Sender: FDA-Public Use
  Company Number: JP-DSJP-DSJ-2015-133318

PATIENT

DRUGS (10)
  1. PHYSIO 140 [Concomitant]
     Dosage: 500 ML, QD
     Route: 042
     Dates: start: 20150831, end: 20150914
  2. NOVASTAN [Concomitant]
     Active Substance: ARGATROBAN
     Indication: CEREBRAL INFARCTION
     Dosage: 60 MG, QD
     Route: 042
     Dates: start: 20150830, end: 20150831
  3. EDARAVONE [Concomitant]
     Active Substance: EDARAVONE
     Indication: CEREBRAL INFARCTION
     Dosage: 30 MG, BID
     Route: 042
     Dates: start: 20150830, end: 20150906
  4. NOVASTAN [Concomitant]
     Active Substance: ARGATROBAN
     Dosage: 10 MG, BID
     Route: 042
     Dates: start: 20150901, end: 20150904
  5. LIXIANA TABLETS 60MG [Suspect]
     Active Substance: EDOXABAN TOSILATE MONOHYDRATE
     Dosage: 30 MG, QD
     Route: 048
     Dates: start: 20151016, end: 20151026
  6. SOLDEM 3A [Concomitant]
     Active Substance: CARBOHYDRATES\POTASSIUM CHLORIDE\SODIUM CHLORIDE\SODIUM LACTATE
     Dosage: 500 ML, QD
     Route: 042
     Dates: start: 20150831, end: 20150908
  7. VITAMEDIN FOR INTRAVENOUS INJECTION [Concomitant]
     Dosage: UNK, QD
     Route: 042
     Dates: start: 20150831, end: 20150907
  8. LIXIANA TABLETS 60MG [Suspect]
     Active Substance: EDOXABAN TOSILATE MONOHYDRATE
     Indication: CEREBRAL INFARCTION
     Dosage: 30 MG, QD
     Route: 048
     Dates: start: 20150905, end: 20150929
  9. BENIDIPINE HYDROCHLORIDE [Concomitant]
     Active Substance: BENIDIPINE HYDROCHLORIDE
     Indication: HYPERTENSION
     Dosage: 4 MG, BID
     Route: 048
     Dates: end: 20150830
  10. GASTER [Concomitant]
     Active Substance: FAMOTIDINE
     Dosage: 20 MG, QD
     Route: 042
     Dates: start: 20150831, end: 20150908

REACTIONS (2)
  - Lung disorder [Recovering/Resolving]
  - Cerebral infarction [Fatal]

NARRATIVE: CASE EVENT DATE: 20150908
